FAERS Safety Report 6793709-6 (Version None)
Quarter: 2010Q2

REPORT INFORMATION
  Report Type: 
  Country: None (occurrence: None)
  Receive Date: 20100624
  Receipt Date: 20090326
  Transmission Date: 20101027
  Serious: No
  Sender: FDA-Public Use
  Company Number: US-PFIZER INC-2008155939

PATIENT
  Age: 54 Year
  Sex: Male
  Weight: 88.435 kg

DRUGS (1)
  1. CADUET [Suspect]
     Dosage: 5/20MG
     Route: 048

REACTIONS (2)
  - ABDOMINAL PAIN UPPER [None]
  - DYSPEPSIA [None]
